FAERS Safety Report 12587353 (Version 2)
Quarter: 2017Q1

REPORT INFORMATION
  Report Type: Spontaneous
  Country: PR (occurrence: PR)
  Receive Date: 20160725
  Receipt Date: 20170104
  Transmission Date: 20170428
  Serious: Yes (Hospitalization)
  Sender: FDA-Public Use
  Company Number: PR-ROCHE-1798083

PATIENT
  Age: 55 Year
  Sex: Female
  Weight: 54.43 kg

DRUGS (15)
  1. EFFEXOR [Suspect]
     Active Substance: VENLAFAXINE HYDROCHLORIDE
     Indication: DEPRESSION
  2. LISINOPRIL. [Concomitant]
     Active Substance: LISINOPRIL
     Indication: BLOOD PRESSURE MEASUREMENT
     Dosage: 20/12.5MG
     Route: 065
     Dates: start: 2009
  3. KLONOPIN [Suspect]
     Active Substance: CLONAZEPAM
     Indication: INSOMNIA
     Dosage: STARTED 2 YEARS, HOUR OF SLEEP (HS)
     Route: 065
  4. EFFEXOR [Suspect]
     Active Substance: VENLAFAXINE HYDROCHLORIDE
     Indication: FIBROMYALGIA
     Route: 065
     Dates: start: 201601, end: 20160219
  5. PROSOM [Concomitant]
     Active Substance: ESTAZOLAM
     Indication: INSOMNIA
     Dosage: DATE STARTED 2 YEARS
     Route: 065
  6. METFORMIN [Concomitant]
     Active Substance: METFORMIN HYDROCHLORIDE
     Indication: DIABETES MELLITUS
     Route: 065
     Dates: start: 2009
  7. SINGULAIR [Concomitant]
     Active Substance: MONTELUKAST SODIUM
     Indication: ASTHMA
     Dosage: EVERY NIGHT
     Route: 065
  8. ARTICHOKE. [Concomitant]
     Active Substance: ARTICHOKE
     Route: 065
  9. MILK THISTLE [Concomitant]
     Active Substance: MILK THISTLE
     Route: 065
  10. CALCIUM CARBONATE/ERGOCALCIFEROL [Concomitant]
     Route: 065
     Dates: start: 2004
  11. FLOVENT [Concomitant]
     Active Substance: FLUTICASONE PROPIONATE
     Indication: ASTHMA
     Dosage: YEAR AGO
     Route: 065
  12. PROAIR HFA [Concomitant]
     Active Substance: ALBUTEROL SULFATE
     Route: 065
  13. FLEXERIL [Concomitant]
     Active Substance: CYCLOBENZAPRINE HYDROCHLORIDE
     Indication: FIBROMYALGIA
     Dosage: STARTED 8 YAERS
     Route: 065
  14. DICLOFENAC [Concomitant]
     Active Substance: DICLOFENAC
     Indication: PAIN
     Route: 065
  15. EFFEXOR [Suspect]
     Active Substance: VENLAFAXINE HYDROCHLORIDE
     Indication: PAIN

REACTIONS (9)
  - Slow speech [Recovered/Resolved]
  - Memory impairment [Not Recovered/Not Resolved]
  - Paraesthesia oral [Recovered/Resolved]
  - Gait disturbance [Recovered/Resolved]
  - Suicide attempt [Unknown]
  - Facial paralysis [Recovered/Resolved]
  - Coordination abnormal [Recovered/Resolved]
  - Vision blurred [Not Recovered/Not Resolved]
  - Depressed mood [Unknown]

NARRATIVE: CASE EVENT DATE: 20160217
